FAERS Safety Report 15286800 (Version 1)
Quarter: 2018Q3

REPORT INFORMATION
  Report Type: Spontaneous
  Country: US (occurrence: US)
  Receive Date: 20180816
  Receipt Date: 20180816
  Transmission Date: 20181010
  Serious: Yes (Other)
  Sender: FDA-Public Use
  Company Number: US-PRINSTON PHARMACEUTICAL INC.-2018PRN00712

PATIENT
  Age: 58 Year
  Sex: Male
  Weight: 81.63 kg

DRUGS (3)
  1. PROTONIX [Concomitant]
     Active Substance: PANTOPRAZOLE SODIUM
  2. METOPROLOL. [Concomitant]
     Active Substance: METOPROLOL
  3. VALSARTAN. [Suspect]
     Active Substance: VALSARTAN
     Indication: HYPERTENSION
     Dosage: 80 MG, 1X/DAY
     Route: 048
     Dates: start: 2010, end: 2018

REACTIONS (1)
  - Phaeochromocytoma [Recovered/Resolved]

NARRATIVE: CASE EVENT DATE: 2015
